FAERS Safety Report 6045942-9 (Version None)
Quarter: 2009Q1

REPORT INFORMATION
  Report Type: 
  Country: None (occurrence: None)
  Receive Date: 20090116
  Receipt Date: 20090106
  Transmission Date: 20090719
  Serious: Yes (Hospitalization, Other)
  Sender: FDA-Public Use
  Company Number: 107#08#2008-06338

PATIENT
  Age: 65 Year
  Sex: Male

DRUGS (2)
  1. AMIODARONE HCL [Suspect]
     Indication: DRUG USE FOR UNKNOWN INDICATION
     Dosage: 400 MG
  2. PROCAINAMIDE [Concomitant]

REACTIONS (12)
  - CACHEXIA [None]
  - CAROTID BRUIT [None]
  - DYSPHAGIA [None]
  - FATIGUE [None]
  - HEPATITIS CHRONIC ACTIVE [None]
  - HYPERTHYROIDISM [None]
  - MARROW HYPERPLASIA [None]
  - MYOPATHY [None]
  - PLATELET COUNT DECREASED [None]
  - PULMONARY TOXICITY [None]
  - WEIGHT DECREASED [None]
  - WEIGHT INCREASED [None]
